FAERS Safety Report 6996819-3 (Version None)
Quarter: 2010Q3

REPORT INFORMATION
  Report Type: 
  Country: None (occurrence: None)
  Receive Date: 20100918
  Receipt Date: 20090708
  Transmission Date: 20110219
  Serious: No
  Sender: FDA-Public Use
  Company Number: US-WYE-H10079609

PATIENT
  Sex: Female
  Weight: 65.83 kg

DRUGS (9)
  1. EFFEXOR XR [Suspect]
     Indication: BIPOLAR I DISORDER
     Route: 048
     Dates: start: 20040101, end: 20090101
  2. EFFEXOR XR [Suspect]
     Dosage: TAPERED DOWN AND STOPPED
     Route: 048
     Dates: start: 20090101, end: 20090701
  3. DIOVAN [Concomitant]
  4. SAVELLA [Concomitant]
  5. TRAMADOL [Concomitant]
  6. SOMA [Concomitant]
  7. CLONAZEPAM [Concomitant]
  8. LYRICA [Concomitant]
  9. KELP [Concomitant]

REACTIONS (2)
  - ALOPECIA [None]
  - HAIR GROWTH ABNORMAL [None]
